FAERS Safety Report 7765476-0 (Version None)
Quarter: 2011Q3

REPORT INFORMATION
  Report Type: 
  Country: None (occurrence: None)
  Receive Date: 20110921
  Receipt Date: 20110908
  Transmission Date: 20111222
  Serious: Yes (Hospitalization)
  Sender: FDA-Public Use
  Company Number: DE-GENENTECH-311459

PATIENT
  Sex: Male
  Weight: 87 kg

DRUGS (2)
  1. RITUXIMAB [Suspect]
     Indication: NON-HODGKIN'S LYMPHOMA
     Dosage: 750 MG, UNK
     Route: 042
     Dates: start: 20101115
  2. BENDAMUSTINE [Suspect]
     Indication: NON-HODGKIN'S LYMPHOMA
     Dosage: 360 MG, UNK
     Route: 042
     Dates: start: 20101116

REACTIONS (1)
  - SEPSIS [None]
